FAERS Safety Report 10846792 (Version 1)
Quarter: 2015Q1

REPORT INFORMATION
  Report Type: Spontaneous
  Country: IT (occurrence: IT)
  Receive Date: 20150220
  Receipt Date: 20150220
  Transmission Date: 20150721
  Serious: Yes (Death)
  Sender: FDA-Public Use
  Company Number: IT-BAYER-2015-025421

PATIENT
  Age: 90 Year
  Sex: Male

DRUGS (1)
  1. CARDIOASPIRIN [Suspect]
     Active Substance: ASPIRIN
     Indication: CORONARY ARTERY DISEASE
     Dosage: 100 MG, DAILY
     Route: 048
     Dates: start: 19930101, end: 20150206

REACTIONS (1)
  - Iron deficiency anaemia [Fatal]

NARRATIVE: CASE EVENT DATE: 20150205
